FAERS Safety Report 7166458-2 (Version None)
Quarter: 2010Q4

REPORT INFORMATION
  Report Type: 
  Country: None (occurrence: None)
  Receive Date: 20101203
  Receipt Date: 20101117
  Transmission Date: 20110411
  Serious: Yes (Hospitalization)
  Sender: FDA-Public Use
  Company Number: 2010110052

PATIENT
  Age: 78 Year
  Sex: Female

DRUGS (8)
  1. TORSEMIDE [Suspect]
     Dosage: (7.5 MG), ORAL; (5 MG), ORAL
     Route: 048
     Dates: start: 20100325, end: 20100326
  2. TORSEMIDE [Suspect]
     Dosage: (7.5 MG), ORAL; (5 MG), ORAL
     Route: 048
     Dates: start: 20100327, end: 20100330
  3. VENLAFAXINE [Suspect]
     Dosage: (27.5 MG), ORAL; (75 MG), ORAL; (150 MG), ORAL
     Route: 048
     Dates: start: 20100105, end: 20100113
  4. VENLAFAXINE [Suspect]
     Dosage: (27.5 MG), ORAL; (75 MG), ORAL; (150 MG), ORAL
     Route: 048
     Dates: start: 20100114, end: 20100324
  5. VENLAFAXINE [Suspect]
     Dosage: (27.5 MG), ORAL; (75 MG), ORAL; (150 MG), ORAL
     Route: 048
     Dates: start: 20100325, end: 20100412
  6. DIPIPERON (PIPAMPERONE) [Suspect]
     Dosage: (40 MG), ORAL; (20 MG), ORAL
     Route: 048
     Dates: start: 20100113, end: 20100211
  7. DIPIPERON (PIPAMPERONE) [Suspect]
     Dosage: (40 MG), ORAL; (20 MG), ORAL
     Route: 048
     Dates: start: 20100212, end: 20100330
  8. LYRICA [Concomitant]

REACTIONS (1)
  - HYPONATRAEMIA [None]
